FAERS Safety Report 20951577 (Version 1)
Quarter: 2022Q2

REPORT INFORMATION
  Report Type: Spontaneous
  Country: US (occurrence: None)
  Receive Date: 20220613
  Receipt Date: 20220613
  Transmission Date: 20220721
  Serious: No
  Sender: FDA-Public Use
  Company Number: None

PATIENT
  Age: 65 Year
  Sex: Male
  Weight: 97.43 kg

DRUGS (7)
  1. MEKINIST [Suspect]
     Active Substance: TRAMETINIB DIMETHYL SULFOXIDE
     Indication: Malignant melanoma
     Dosage: FREQUENCY : DAILY;?
     Route: 048
  2. TAFINLAR [Suspect]
     Active Substance: DABRAFENIB MESYLATE
     Indication: Malignant melanoma
     Dosage: FREQUENCY : EVERY 12 HOURS;?
     Route: 048
  3. MAALOX [Concomitant]
  4. OPDIVO [Concomitant]
  5. PROCHLORPERAZINE [Concomitant]
  6. TYLENOL [Concomitant]
  7. ZOFRAN [Concomitant]
     Active Substance: ONDANSETRON HYDROCHLORIDE

REACTIONS (2)
  - Disease progression [None]
  - Drug ineffective [None]
